FAERS Safety Report 7476483-X (Version None)
Quarter: 2011Q2

REPORT INFORMATION
  Report Type: 
  Country: None (occurrence: None)
  Receive Date: 20110510
  Receipt Date: 20110510
  Transmission Date: 20111010
  Serious: Yes (Hospitalization)
  Sender: FDA-Public Use
  Company Number: None

PATIENT
  Age: 53 Year
  Sex: Male
  Weight: 84 kg

DRUGS (1)
  1. CORTISONE ACETATE [Suspect]
     Indication: PAIN
     Dates: start: 20110216, end: 20110216

REACTIONS (6)
  - POLYURIA [None]
  - VISION BLURRED [None]
  - POLYDIPSIA [None]
  - HEADACHE [None]
  - THIRST [None]
  - HYPERGLYCAEMIA [None]
